FAERS Safety Report 9928512 (Version 1)
Quarter: 2014Q1

REPORT INFORMATION
  Report Type: Spontaneous
  Country: US (occurrence: None)
  Receive Date: 20140224
  Receipt Date: 20140224
  Transmission Date: 20141002
  Serious: Yes (Death)
  Sender: FDA-Public Use
  Company Number: NL01PV14.35141

PATIENT
  Age: 53 Year
  Sex: Female

DRUGS (5)
  1. UNKNOWN (ZOLPIDEM) TABLET [Suspect]
  2. ETHANOL [Suspect]
  3. ACETAMINOPHEN (PARACETAMOL) [Suspect]
  4. FENTANYL (FENTANYL) [Suspect]
  5. ACETAMINOPHEN W/HYDROCODONE (HYDROCODONE) [Suspect]

REACTIONS (1)
  - Death [None]
